FAERS Safety Report 4603579-X (Version None)
Quarter: 2005Q1

REPORT INFORMATION
  Report Type: 
  Country: None (occurrence: None)
  Receive Date: 20050308
  Receipt Date: 20050221
  Transmission Date: 20050727
  Serious: Yes (Hospitalization)
  Sender: FDA-Public Use
  Company Number: DE-2005-002770

PATIENT
  Sex: Female

DRUGS (1)
  1. MIRENA [Suspect]
     Dosage: 20 UG/DAY, CONT, INTRA-UTERINE
     Route: 015
     Dates: start: 20040201, end: 20040101

REACTIONS (4)
  - ALCOHOL INTOLERANCE [None]
  - ASTHENIA [None]
  - HEPATITIS TOXIC [None]
  - IMPAIRED WORK ABILITY [None]
